FAERS Safety Report 17088499 (Version 2)
Quarter: 2019Q4

REPORT INFORMATION
  Report Type: Report from Study
  Country: DE (occurrence: DE)
  Receive Date: 20191128
  Receipt Date: 20191216
  Transmission Date: 20200122
  Serious: Yes (Death, Hospitalization, Other)
  Sender: FDA-Public Use
  Company Number: DE-ROCHE-2475576

PATIENT
  Age: 85 Year
  Sex: Male
  Weight: 82 kg

DRUGS (44)
  1. RITUXIMAB. [Suspect]
     Active Substance: RITUXIMAB
     Route: 041
     Dates: start: 20181217, end: 20181217
  2. CYCLOPHOSPHAMIDE. [Suspect]
     Active Substance: CYCLOPHOSPHAMIDE
     Indication: DIFFUSE LARGE B-CELL LYMPHOMA
     Dosage: 781 MG, INFUSION RATE 16.6 (ML/MIN)
     Route: 041
     Dates: start: 20181003, end: 20181003
  3. CYCLOPHOSPHAMIDE. [Suspect]
     Active Substance: CYCLOPHOSPHAMIDE
     Dosage: 781 MG, (INFUSION RATE16.6 ML/MIN FROM 12:30 TO 13:40)
     Route: 041
     Dates: start: 20181204, end: 20181204
  4. PREDNISONE. [Suspect]
     Active Substance: PREDNISONE
     Dosage: 500 MG, UNK
     Route: 048
     Dates: start: 20181002, end: 20181006
  5. VINCRISTINE [Suspect]
     Active Substance: VINCRISTINE
     Dosage: 1 MG, (INFUSION RATE 6.6 ML/MIN FROM 10:40 TO 11:00)
     Route: 041
     Dates: start: 20181204, end: 20181204
  6. VINCRISTINE [Suspect]
     Active Substance: VINCRISTINE
     Dosage: 1 MG, (INFUSION RATE 6.6 ML/MIN FROM 10:20 TO 10:40)
     Route: 041
     Dates: start: 20181218, end: 20181218
  7. CERTOPARIN SODIUM [Concomitant]
     Active Substance: CERTOPARIN SODIUM
     Indication: PROPHYLAXIS
     Dosage: UNK
     Route: 058
     Dates: start: 20181225, end: 20190103
  8. MESNA. [Concomitant]
     Active Substance: MESNA
     Indication: PROPHYLAXIS
     Dosage: UNK
     Route: 042
     Dates: start: 20181003, end: 20181118
  9. INSULIN [Concomitant]
     Active Substance: INSULIN NOS
     Indication: DIABETES MELLITUS
     Dosage: UNK
     Route: 058
     Dates: start: 19980101
  10. ACETYLSALICYLIC ACID [Concomitant]
     Active Substance: ASPIRIN
     Indication: CORONARY ARTERY DISEASE
     Dosage: UNK
     Route: 048
     Dates: start: 20041001
  11. RITUXIMAB. [Suspect]
     Active Substance: RITUXIMAB
     Route: 041
     Dates: start: 20181018, end: 20181018
  12. PREDNISONE. [Suspect]
     Active Substance: PREDNISONE
     Dosage: 500 MG, UNK
     Route: 048
     Dates: start: 20181203, end: 20181207
  13. VINCRISTINE [Suspect]
     Active Substance: VINCRISTINE
     Dosage: 1 MG, (INFUSION RATE 6.6 ML/MIN FROM 9:05 TO 9:20)
     Route: 041
     Dates: start: 20181019, end: 20181019
  14. CLEMASTINE [Concomitant]
     Active Substance: CLEMASTINE
     Indication: PROPHYLAXIS
     Dosage: UNK
     Route: 042
     Dates: start: 20181002, end: 20181217
  15. RITUXIMAB. [Suspect]
     Active Substance: RITUXIMAB
     Route: 041
     Dates: start: 20181119, end: 20181119
  16. RITUXIMAB. [Suspect]
     Active Substance: RITUXIMAB
     Route: 041
     Dates: start: 20181203, end: 20181203
  17. RITUXIMAB. [Suspect]
     Active Substance: RITUXIMAB
     Route: 041
     Dates: start: 20190107, end: 20190107
  18. CYCLOPHOSPHAMIDE. [Suspect]
     Active Substance: CYCLOPHOSPHAMIDE
     Dosage: 781 MG, (INFUSION RATE16.6 ML/MIN FROM 11:30 TO 12:35)
     Route: 041
     Dates: start: 20181120, end: 20181120
  19. CYCLOPHOSPHAMIDE. [Suspect]
     Active Substance: CYCLOPHOSPHAMIDE
     Dosage: 781 MG, (INFUSION RATE16.6 ML/MIN FROM 11:00 TO 12:00)
     Route: 041
     Dates: start: 20181106, end: 20181106
  20. DOXORUBICIN [Suspect]
     Active Substance: DOXORUBICIN
     Indication: DIFFUSE LARGE B-CELL LYMPHOMA
     Dosage: 49 MG, (INFUSION RATE 2.0 ML/MIN FROM 10:40 TO 11:45)
     Route: 041
     Dates: start: 20181218, end: 20181218
  21. DOXORUBICIN [Suspect]
     Active Substance: DOXORUBICIN
     Dosage: 49 MG, (INFUSION RATE 2.0 ML/MIN FROM 09:20 TO 10:43)
     Route: 041
     Dates: start: 20181019, end: 20181019
  22. DOXORUBICIN [Suspect]
     Active Substance: DOXORUBICIN
     Dosage: 49 MG, (INFUSION RATE 2.0 ML/MIN FROM 10:40 TO 11:15)
     Route: 041
     Dates: start: 20181120, end: 20181120
  23. VINCRISTINE [Suspect]
     Active Substance: VINCRISTINE
     Dosage: 1 MG, INFUSION RATE 6.6 (ML/MIN)
     Route: 041
     Dates: start: 20181003, end: 20181003
  24. METOCLOPRAMID [METOCLOPRAMIDE] [Concomitant]
     Active Substance: METOCLOPRAMIDE
     Indication: PROPHYLAXIS
     Dosage: UNK
     Route: 048
     Dates: start: 20181003, end: 20181221
  25. PREDNISONE. [Suspect]
     Active Substance: PREDNISONE
     Dosage: 500 MG, UNK
     Route: 048
     Dates: start: 20181119, end: 20181123
  26. RITUXIMAB. [Suspect]
     Active Substance: RITUXIMAB
     Dosage: 730 MG, UNK
     Route: 041
     Dates: start: 20181002, end: 20181002
  27. DOXORUBICIN [Suspect]
     Active Substance: DOXORUBICIN
     Dosage: 49 MG, (INFUSION RATE 2.0 ML/MIN FROM 11:00 TO 12:15)
     Route: 041
     Dates: start: 20181204, end: 20181204
  28. VINCRISTINE [Suspect]
     Active Substance: VINCRISTINE
     Indication: DIFFUSE LARGE B-CELL LYMPHOMA
     Dosage: 1 MG, (INFUSION RATE 6.6 ML/MIN FROM 9:28 TO 11:00)
     Route: 041
     Dates: start: 20181106, end: 20181106
  29. RITUXIMAB. [Suspect]
     Active Substance: RITUXIMAB
     Route: 041
     Dates: start: 20190128
  30. CYCLOPHOSPHAMIDE. [Suspect]
     Active Substance: CYCLOPHOSPHAMIDE
     Dosage: 781 MG, (INFUSION RATE16.6 ML/MIN FROM 11:10 TO 12:12)
     Route: 041
     Dates: start: 20181019, end: 20181019
  31. DOXORUBICIN [Suspect]
     Active Substance: DOXORUBICIN
     Dosage: 49 MG, (INFUSION RATE 2.0 ML/MIN FROM 09:12 TO 09:42)
     Route: 041
     Dates: start: 20181106, end: 20181106
  32. DOXORUBICIN [Suspect]
     Active Substance: DOXORUBICIN
     Dosage: 49 MG, INFUSION RATE 2.0 (ML/MIN)
     Route: 041
     Dates: start: 20181003, end: 20181003
  33. VINCRISTINE [Suspect]
     Active Substance: VINCRISTINE
     Dosage: 1 MG, (INFUSION RATE 6.6 ML/MIN FROM 9:50 TO 10:10)
     Route: 041
     Dates: start: 20181120, end: 20181120
  34. PARACETAMOL [Concomitant]
     Active Substance: ACETAMINOPHEN
     Indication: PROPHYLAXIS
     Dosage: UNK
     Route: 048
     Dates: start: 20181002
  35. ONDANSETRON [Concomitant]
     Active Substance: ONDANSETRON
     Indication: PROPHYLAXIS
     Dosage: UNK
     Route: 042
     Dates: start: 20181002, end: 20181217
  36. RITUXIMAB. [Suspect]
     Active Substance: RITUXIMAB
     Indication: DIFFUSE LARGE B-CELL LYMPHOMA
     Route: 041
     Dates: start: 20181105, end: 20181105
  37. CYCLOPHOSPHAMIDE. [Suspect]
     Active Substance: CYCLOPHOSPHAMIDE
     Dosage: 781 MG, (INFUSION RATE16.6 ML/MIN FROM 12:15 TO 13:21)
     Route: 041
     Dates: start: 20181218, end: 20181218
  38. PREDNISOLONE. [Concomitant]
     Active Substance: PREDNISOLONE
     Indication: PROPHYLAXIS
     Dosage: UNK
     Route: 042
     Dates: start: 20181002, end: 20181217
  39. L-THYROXIN [LEVOTHYROXINE] [Concomitant]
     Active Substance: LEVOTHYROXINE SODIUM
     Indication: HYPOTHYROIDISM
     Dosage: UNK
     Route: 048
     Dates: start: 20030101
  40. RANITIDINE. [Concomitant]
     Active Substance: RANITIDINE
     Indication: PROPHYLAXIS
     Dosage: UNK
     Route: 042
     Dates: start: 20181002, end: 20181217
  41. PREDNISONE. [Suspect]
     Active Substance: PREDNISONE
     Indication: DIFFUSE LARGE B-CELL LYMPHOMA
     Route: 048
     Dates: start: 20181018, end: 20181022
  42. PREDNISONE. [Suspect]
     Active Substance: PREDNISONE
     Dosage: 500 MG, UNK
     Route: 048
     Dates: start: 20181105, end: 20181109
  43. PREDNISONE. [Suspect]
     Active Substance: PREDNISONE
     Dosage: 500 MG, UNK
     Route: 048
     Dates: start: 20181217, end: 20181221
  44. BISOPROLOL [Concomitant]
     Active Substance: BISOPROLOL
     Indication: CORONARY ARTERY DISEASE
     Dosage: UNK
     Route: 048
     Dates: start: 20040101

REACTIONS (15)
  - Rash [Recovered/Resolved]
  - Hypokalaemia [Recovered/Resolved]
  - Constipation [Recovered/Resolved]
  - Hypertension [Not Recovered/Not Resolved]
  - Lymphadenopathy mediastinal [Fatal]
  - Neutrophil count decreased [Recovered/Resolved]
  - Pleural effusion [Fatal]
  - Pulmonary vascular disorder [Recovered/Resolved]
  - Asthenia [Recovered/Resolved]
  - Malignant neoplasm progression [Fatal]
  - Fatigue [Not Recovered/Not Resolved]
  - Pyrexia [Recovered/Resolved]
  - Pneumonia [Recovered/Resolved]
  - Neutrophil count decreased [Recovered/Resolved]
  - Delirium [Fatal]

NARRATIVE: CASE EVENT DATE: 20181107
